FAERS Safety Report 23094445 (Version 7)
Quarter: 2025Q1

REPORT INFORMATION
  Report Type: Report from Study
  Country: US (occurrence: US)
  Receive Date: 20231023
  Receipt Date: 20250205
  Transmission Date: 20250408
  Serious: Yes (Other)
  Sender: TAKEDA
  Company Number: US-TAKEDA-2023TUS101519

PATIENT
  Age: 8 Year
  Sex: Male

DRUGS (4)
  1. ADVATE [Suspect]
     Active Substance: ANTIHEMOPHILIC FACTOR, HUMAN RECOMBINANT
     Indication: Haemorrhage
  2. ADVATE [Suspect]
     Active Substance: ANTIHEMOPHILIC FACTOR, HUMAN RECOMBINANT
  3. ADVATE [Suspect]
     Active Substance: ANTIHEMOPHILIC FACTOR, HUMAN RECOMBINANT
  4. ADVATE [Suspect]
     Active Substance: ANTIHEMOPHILIC FACTOR, HUMAN RECOMBINANT

REACTIONS (8)
  - Haemarthrosis [Recovering/Resolving]
  - Eye contusion [Unknown]
  - Soft tissue haemorrhage [Unknown]
  - Fall [Unknown]
  - Face injury [Unknown]
  - COVID-19 [Recovering/Resolving]
  - Animal bite [Unknown]
  - Head injury [Unknown]

NARRATIVE: CASE EVENT DATE: 20230926
